FAERS Safety Report 9570292 (Version 1)
Quarter: 2013Q3

REPORT INFORMATION
  Report Type: Spontaneous
  Country: US (occurrence: None)
  Receive Date: 20130927
  Receipt Date: 20130927
  Transmission Date: 20140515
  Serious: Yes (Other)
  Sender: FDA-Public Use
  Company Number: US-ZYDUS-002239

PATIENT
  Sex: Female

DRUGS (1)
  1. HYDROXYCHLOROQUINE [Suspect]
     Indication: CONNECTIVE TISSUE DISORDER

REACTIONS (4)
  - Posterior reversible encephalopathy syndrome [None]
  - Status epilepticus [None]
  - Complex partial seizures [None]
  - Brain oedema [None]
